FAERS Safety Report 17816949 (Version 1)
Quarter: 2020Q2

REPORT INFORMATION
  Report Type: Report from Study
  Country: CA (occurrence: CA)
  Receive Date: 20200522
  Receipt Date: 20200522
  Transmission Date: 20200714
  Serious: Yes (Hospitalization, Other)
  Sender: FDA-Public Use
  Company Number: CA-PFIZER INC-2020201484

PATIENT
  Sex: Male

DRUGS (9)
  1. ATORVASTATIN CALCIUM. [Suspect]
     Active Substance: ATORVASTATIN CALCIUM
     Route: 065
  2. ESBRIET [Suspect]
     Active Substance: PIRFENIDONE
     Dosage: UNK, 1X/DAY
     Route: 048
  3. ASPIRINE [Concomitant]
     Active Substance: ASPIRIN
     Dosage: 81 MG
  4. LIPITOR [Concomitant]
     Active Substance: ATORVASTATIN CALCIUM
  5. ROSUVASTATIN CALCIUM. [Concomitant]
     Active Substance: ROSUVASTATIN CALCIUM
  6. ESBRIET [Suspect]
     Active Substance: PIRFENIDONE
     Indication: IDIOPATHIC PULMONARY FIBROSIS
     Dosage: UNK, 1X/DAY
     Route: 048
  7. ESBRIET [Suspect]
     Active Substance: PIRFENIDONE
     Indication: IDIOPATHIC PULMONARY FIBROSIS
     Dosage: UNK, 1X/DAY
     Route: 048
  8. OXYGEN. [Concomitant]
     Active Substance: OXYGEN
  9. ESBRIET [Suspect]
     Active Substance: PIRFENIDONE
     Dosage: 267 MG, 3X/DAY
     Route: 048

REACTIONS (7)
  - Cough [Not Recovered/Not Resolved]
  - Hypoxia [Not Recovered/Not Resolved]
  - Lung disorder [Not Recovered/Not Resolved]
  - Pollakiuria [Not Recovered/Not Resolved]
  - Decreased appetite [Not Recovered/Not Resolved]
  - Fatigue [Not Recovered/Not Resolved]
  - Dyspnoea [Not Recovered/Not Resolved]
